FAERS Safety Report 8059960-2 (Version None)
Quarter: 2012Q1

REPORT INFORMATION
  Report Type: 
  Country: None (occurrence: None)
  Receive Date: 20120120
  Receipt Date: 20120111
  Transmission Date: 20120608
  Serious: Yes (Life-Threatening, Other)
  Sender: FDA-Public Use
  Company Number: MW-ABBOTT-11P-100-0855043-00

PATIENT
  Sex: Female
  Weight: 55 kg

DRUGS (5)
  1. LAMIVUDINE [Concomitant]
     Indication: HIV INFECTION
     Route: 048
     Dates: start: 20110912
  2. STAVUDINE [Concomitant]
     Indication: HIV INFECTION
     Route: 048
     Dates: start: 20110831
  3. COTRIM [Concomitant]
     Indication: PROPHYLAXIS
  4. FERROUS SULFATE TAB [Concomitant]
     Indication: ANAEMIA OF PREGNANCY
  5. LOPINAVIR/RITONAVIR [Suspect]
     Indication: HIV INFECTION
     Dosage: 400/100MG
     Route: 048
     Dates: start: 20110812

REACTIONS (2)
  - HAEMOGLOBIN DECREASED [None]
  - ABORTION MISSED [None]
